FAERS Safety Report 9319529 (Version 7)
Quarter: 2016Q3

REPORT INFORMATION
  Report Type: Spontaneous
  Country: US (occurrence: US)
  Receive Date: 20130530
  Receipt Date: 20160705
  Transmission Date: 20161109
  Serious: Yes (Hospitalization, Other)
  Sender: FDA-Public Use
  Company Number: US-GLAXOSMITHKLINE-A0997347A

PATIENT
  Age: 52 Year
  Sex: Male
  Weight: 102 kg

DRUGS (8)
  1. FLOLAN [Suspect]
     Active Substance: EPOPROSTENOL SODIUM
     Dosage: UNK
     Dates: start: 20120831
  2. FLOLAN [Suspect]
     Active Substance: EPOPROSTENOL SODIUM
     Dosage: UNK
     Dates: start: 20120831
  3. FLOLAN [Suspect]
     Active Substance: EPOPROSTENOL SODIUM
     Dosage: 46 NG/KG/MIN, CONTINOUS
     Dates: start: 20120830
  4. FLOLAN [Suspect]
     Active Substance: EPOPROSTENOL SODIUM
     Indication: COR PULMONALE CHRONIC
     Dosage: 1.5 MG VIAL STRENGTH, 30,000 NG/ML CONCENTRATION, CONTINUOUSDOSE: 10 NG/KG/MIN CONTINUOUSLYCONC[...]
     Route: 042
     Dates: start: 20120831
  5. FLOLAN [Suspect]
     Active Substance: EPOPROSTENOL SODIUM
     Dosage: UNK
     Dates: start: 20120831
  6. FLOLAN [Suspect]
     Active Substance: EPOPROSTENOL SODIUM
     Dosage: UNK
     Dates: start: 20120831
  7. FLOLAN [Suspect]
     Active Substance: EPOPROSTENOL SODIUM
     Indication: PULMONARY HYPERTENSION
     Dosage: UNK
     Dates: start: 20120831
  8. FLOLAN [Suspect]
     Active Substance: EPOPROSTENOL SODIUM
     Dosage: 48.5 NG/KG/MIN CONTINUOUSLY
     Dates: start: 20120830

REACTIONS (13)
  - Diarrhoea [Not Recovered/Not Resolved]
  - Urticaria [Unknown]
  - Device connection issue [Unknown]
  - Nausea [Recovering/Resolving]
  - Malaise [Unknown]
  - Fatigue [Recovering/Resolving]
  - Headache [Unknown]
  - Rash macular [Recovering/Resolving]
  - Flushing [Unknown]
  - Eye swelling [Recovering/Resolving]
  - Pain in jaw [Unknown]
  - Liver transplant [Unknown]
  - Dysentery [Unknown]

NARRATIVE: CASE EVENT DATE: 20130831
